FAERS Safety Report 13990242 (Version 2)
Quarter: 2017Q4

REPORT INFORMATION
  Report Type: Spontaneous
  Country: US (occurrence: US)
  Receive Date: 20170920
  Receipt Date: 20171004
  Transmission Date: 20180321
  Serious: No
  Sender: FDA-Public Use
  Company Number: US-ASTRAZENECA-2017SE95072

PATIENT
  Age: 1048 Month
  Sex: Male
  Weight: 84.8 kg

DRUGS (16)
  1. DALIRESP [Suspect]
     Active Substance: ROFLUMILAST
     Indication: CHRONIC OBSTRUCTIVE PULMONARY DISEASE
     Route: 048
     Dates: start: 201708, end: 201708
  2. OTC VITRON C [Concomitant]
     Indication: BLOOD IRON ABNORMAL
     Route: 048
  3. DALIRESP [Suspect]
     Active Substance: ROFLUMILAST
     Indication: CHRONIC OBSTRUCTIVE PULMONARY DISEASE
     Route: 048
  4. PAROXETINE. [Concomitant]
     Active Substance: PAROXETINE
     Indication: ANTIDEPRESSANT THERAPY
     Route: 048
     Dates: start: 2015
  5. RANITIDINE. [Concomitant]
     Active Substance: RANITIDINE
     Indication: ABDOMINAL PAIN UPPER
     Route: 048
  6. OTC CRANBERRY [Concomitant]
     Route: 048
  7. OTC SUPER MVI [Concomitant]
     Route: 048
  8. GLUCOSAMINE [Concomitant]
     Active Substance: GLUCOSAMINE
     Route: 048
  9. OMEGA XL [Concomitant]
     Active Substance: DIETARY SUPPLEMENT
     Indication: ARTHRITIS
     Route: 048
  10. FERROUS SULFATE. [Concomitant]
     Active Substance: FERROUS SULFATE
     Route: 048
     Dates: start: 2007
  11. TRAMADOL. [Concomitant]
     Active Substance: TRAMADOL
     Indication: ABDOMINAL PAIN UPPER
     Dosage: 50.0MG AS REQUIRED
     Route: 048
  12. OTC CO Q 10 [Concomitant]
     Indication: CARDIAC DISORDER
     Route: 048
  13. OTC B12 [Concomitant]
     Route: 048
  14. FUROSEMIDE. [Concomitant]
     Active Substance: FUROSEMIDE
     Route: 048
     Dates: start: 2007
  15. TERAZOSIN [Concomitant]
     Active Substance: TERAZOSIN\TERAZOSIN HYDROCHLORIDE
     Route: 048
  16. OTC VIT C [Concomitant]
     Route: 048

REACTIONS (1)
  - Pruritus generalised [Recovered/Resolved]

NARRATIVE: CASE EVENT DATE: 201708
